APPROVED DRUG PRODUCT: FAMVIR
Active Ingredient: FAMCICLOVIR
Strength: 125MG **Federal Register determination that product was not discontinued or withdrawn for safety or effectiveness reasons**
Dosage Form/Route: TABLET;ORAL
Application: N020363 | Product #003
Applicant: NOVARTIS PHARMACEUTICALS CORP
Approved: Dec 11, 1995 | RLD: Yes | RS: No | Type: DISCN